FAERS Safety Report 8166183-5 (Version None)
Quarter: 2012Q1

REPORT INFORMATION
  Report Type: 
  Country: None (occurrence: None)
  Receive Date: 20120227
  Receipt Date: 20110512
  Transmission Date: 20120608
  Serious: No
  Sender: FDA-Public Use
  Company Number: US-MYLANLABS-2011S1008548

PATIENT
  Age: 28 Year
  Sex: Female
  Weight: 54.43 kg

DRUGS (4)
  1. CONTRACEPTIVE [Concomitant]
  2. AMNESTEEM [Suspect]
     Indication: ACNE
     Dates: start: 20110322, end: 20110422
  3. SPIRONOLACTONE [Concomitant]
  4. FINASTERIDE [Concomitant]

REACTIONS (3)
  - DEPRESSED MOOD [None]
  - EMOTIONAL DISORDER [None]
  - CRYING [None]
